FAERS Safety Report 6558835-5 (Version None)
Quarter: 2010Q1

REPORT INFORMATION
  Report Type: 
  Country: None (occurrence: None)
  Receive Date: 20100129
  Receipt Date: 20100126
  Transmission Date: 20100710
  Serious: Yes (Death)
  Sender: FDA-Public Use
  Company Number: PHHY2010FR01728

PATIENT
  Sex: Male
  Weight: 57 kg

DRUGS (5)
  1. RASILEZ [Suspect]
     Indication: HYPERTENSION
     Dosage: 150 MG, QD
     Route: 048
     Dates: start: 20091205
  2. COOLMETEC [Concomitant]
     Indication: HYPERTENSION
     Dosage: 20/25 MG DAILY
  3. PERMIXON [Concomitant]
     Indication: PROSTATIC DISORDER
     Dosage: 2 DF, DAILY
  4. LANZOR [Concomitant]
     Indication: ABDOMINAL PAIN UPPER
     Dosage: 15 MG, DAILY
  5. DISOMINE [Concomitant]
     Indication: VENOUS INSUFFICIENCY
     Dosage: 600 MG, DAILY

REACTIONS (1)
  - CARDIAC ARREST [None]
